FAERS Safety Report 4304367-4 (Version None)
Quarter: 2004Q1

REPORT INFORMATION
  Report Type: 
  Country: None (occurrence: None)
  Receive Date: 20040224
  Receipt Date: 20040212
  Transmission Date: 20041129
  Serious: Yes (Hospitalization)
  Sender: FDA-Public Use
  Company Number: US-JNJFOC-20030706205

PATIENT
  Age: 42 Year
  Sex: Male
  Weight: 79.3795 kg

DRUGS (4)
  1. INFLIXIMAB (INFLIXIMAB, RECOMBINANT) LYOPHILIZED POWDER [Suspect]
     Indication: CROHN'S DISEASE
     Dosage: 5 MG/KG, INTRAVENOUS
     Route: 042
     Dates: start: 20030424, end: 20030424
  2. METHADONE HCL [Suspect]
  3. PREDNISONE [Concomitant]
  4. MESALAMINE [Concomitant]

REACTIONS (14)
  - ABDOMINAL PAIN [None]
  - ANKYLOSING SPONDYLITIS [None]
  - ANXIETY [None]
  - CONFUSIONAL STATE [None]
  - CROHN'S DISEASE [None]
  - DISEASE RECURRENCE [None]
  - LETHARGY [None]
  - LIVER FUNCTION TEST ABNORMAL [None]
  - MUSCLE CRAMP [None]
  - MYALGIA [None]
  - OSTEOPOROSIS [None]
  - PNEUMONIA LEGIONELLA [None]
  - SMALL INTESTINAL OBSTRUCTION [None]
  - URINARY TRACT DISORDER [None]
